FAERS Safety Report 9032600 (Version 2)
Quarter: 2013Q1

REPORT INFORMATION
  Report Type: Spontaneous
  Country: US (occurrence: US)
  Receive Date: 20130122
  Receipt Date: 20130320
  Transmission Date: 20140127
  Serious: Yes (Death)
  Sender: FDA-Public Use
  Company Number: PHEH2013US001683

PATIENT
  Sex: Male

DRUGS (11)
  1. EXJADE [Suspect]
     Indication: IRON OVERLOAD
     Dosage: 250 MG, TID
     Route: 048
     Dates: start: 20120207
  2. EXJADE [Suspect]
     Dosage: 250 MG, BID
     Route: 048
  3. COLCRYS [Concomitant]
     Dosage: 0.5 MG, BID
     Route: 048
  4. DIGOXINE [Concomitant]
     Dosage: 0.125 MG, QD
     Route: 048
  5. LASIX [Concomitant]
     Dosage: 40 MG, QD
     Route: 048
  6. METOPROLOL [Concomitant]
     Dosage: 25 G, QD
  7. FLONASE [Concomitant]
  8. PANTOPRAZOLE [Concomitant]
     Dosage: UNK UKN, UNK
  9. KCL [Concomitant]
     Dosage: UNK UKN, UNK
  10. CARZEPIN [Concomitant]
     Dosage: UNK UKN, UNK
  11. COUMADINE [Concomitant]

REACTIONS (2)
  - Sepsis [Fatal]
  - Infection [Fatal]
